FAERS Safety Report 16808963 (Version 1)
Quarter: 2019Q3

REPORT INFORMATION
  Report Type: Spontaneous
  Country: FR (occurrence: FR)
  Receive Date: 20190916
  Receipt Date: 20190916
  Transmission Date: 20191005
  Serious: Yes (Congenital Anomaly)
  Sender: FDA-Public Use
  Company Number: FR-US-PROVELL PHARMACEUTICALS LLC-E2B_90070578

PATIENT
  Age: 0 Day
  Sex: Male

DRUGS (1)
  1. LEVOTHYROX 100 [Suspect]
     Active Substance: LEVOTHYROXINE SODIUM
     Indication: HYPOTHYROIDISM
     Route: 064

REACTIONS (1)
  - Craniofacial dysostosis [Recovered/Resolved with Sequelae]

NARRATIVE: CASE EVENT DATE: 2011
